FAERS Safety Report 20307460 (Version 1)
Quarter: 2022Q1

REPORT INFORMATION
  Report Type: Spontaneous
  Country: US (occurrence: US)
  Receive Date: 20220107
  Receipt Date: 20220107
  Transmission Date: 20220423
  Serious: Yes (Death, Life-Threatening, Hospitalization, Other)
  Sender: FDA-Public Use
  Company Number: None

PATIENT
  Age: 25 Year
  Sex: Male

DRUGS (3)
  1. MYCOPHENOLATE MOFETIL [Suspect]
     Active Substance: MYCOPHENOLATE MOFETIL
     Indication: Immunosuppressant drug therapy
     Dosage: UNK
     Route: 065
  2. TACROLIMUS [Suspect]
     Active Substance: TACROLIMUS
     Indication: Immunosuppressant drug therapy
     Dosage: UNK
     Route: 065
  3. PREDNISONE [Suspect]
     Active Substance: PREDNISONE
     Indication: Immunosuppressant drug therapy
     Dosage: UNK
     Route: 065

REACTIONS (13)
  - Disseminated mucormycosis [Fatal]
  - Gastrointestinal mucormycosis [Fatal]
  - Corynebacterium infection [Unknown]
  - Mediastinitis [Unknown]
  - Pneumonia [Unknown]
  - Pneumoperitoneum [Unknown]
  - Lactic acidosis [Unknown]
  - Hypothermia [Unknown]
  - Gastrointestinal perforation [Unknown]
  - Pseudomonas infection [Unknown]
  - Candida infection [Unknown]
  - Postoperative thoracic procedure complication [Unknown]
  - Small intestinal obstruction [Unknown]
